FAERS Safety Report 8759466 (Version 2)
Quarter: 2012Q4

REPORT INFORMATION
  Report Type: 
  Country: FR (occurrence: FR)
  Receive Date: 20120829
  Receipt Date: 20120829
  Transmission Date: 20130627
  Serious: Yes (Death, Hospitalization, Other)
  Sender: FDA-Public Use
  Company Number: FR-MSD JAPAN-2012SP034548

PATIENT

DRUGS (5)
  1. VICTRELIS [Suspect]
     Indication: HEPATITIS C
     Dosage: 800 mg, TID
     Dates: start: 20120209, end: 20120411
  2. VIRAFERONPEG [Suspect]
     Indication: HEPATITIS C
     Dosage: 80 ?g, QW
     Dates: start: 20120112, end: 20120411
  3. REBETOL [Suspect]
     Indication: HEPATITIS C
     Dosage: 800 mg, QD
     Dates: start: 20120112, end: 20120411
  4. XANAX [Concomitant]
     Indication: ANXIETY
     Dosage: 0.25 mg, QD
     Dates: start: 20120209, end: 20120411
  5. BEBETINA [Concomitant]
     Indication: ANTIVIRAL PROPHYLAXIS
     Dosage: 1 g, TID
     Dates: start: 20120112, end: 20120411

REACTIONS (3)
  - Cardio-respiratory arrest [Fatal]
  - Pleural effusion [Unknown]
  - Lung consolidation [Unknown]
